FAERS Safety Report 9530073 (Version 1)
Quarter: 2013Q3

REPORT INFORMATION
  Report Type: Spontaneous
  Country: US (occurrence: US)
  Receive Date: 20130917
  Receipt Date: 20130917
  Transmission Date: 20140515
  Serious: Yes (Other)
  Sender: FDA-Public Use
  Company Number: US-BAXTER-2012BAX000718

PATIENT
  Age: 72 Year
  Sex: Male

DRUGS (1)
  1. BEBULIN [Suspect]
     Indication: FACTOR IX DEFICIENCY

REACTIONS (1)
  - Renal vascular thrombosis [Unknown]
